FAERS Safety Report 7306757-4 (Version None)
Quarter: 2011Q1

REPORT INFORMATION
  Report Type: 
  Country: None (occurrence: None)
  Receive Date: 20110222
  Receipt Date: 20110210
  Transmission Date: 20110831
  Serious: Yes (Death)
  Sender: FDA-Public Use
  Company Number: JP-BAYER-2011-005662

PATIENT
  Sex: Male
  Weight: 54 kg

DRUGS (4)
  1. MEROPENEM [Concomitant]
     Indication: LEUKAEMIA
     Dosage: 0.5 G, BID
     Route: 041
     Dates: start: 20100213, end: 20100214
  2. CIPROXAN-I.V.300 [Suspect]
     Indication: LEUKAEMIA
     Dosage: 300 MG, BID
     Route: 041
     Dates: start: 20100213, end: 20100213
  3. GLOVENIN I [Concomitant]
     Dosage: DAILY DOSE 5 G
     Route: 042
     Dates: start: 20100213, end: 20100215
  4. RED CELLS MAP [Concomitant]
     Dosage: UNK
     Route: 042
     Dates: start: 20100215, end: 20100216

REACTIONS (2)
  - MULTI-ORGAN FAILURE [None]
  - SEPSIS [None]
